FAERS Safety Report 5828069-8 (Version None)
Quarter: 2008Q3

REPORT INFORMATION
  Report Type: 
  Country: None (occurrence: None)
  Receive Date: 20080730
  Receipt Date: 20080529
  Transmission Date: 20090109
  Serious: No
  Sender: FDA-Public Use
  Company Number: A0732025A

PATIENT
  Age: 8 Year
  Sex: Male

DRUGS (1)
  1. ZANTAC [Suspect]
     Route: 065

REACTIONS (1)
  - DRUG INEFFECTIVE [None]
